FAERS Safety Report 17390734 (Version 1)
Quarter: 2020Q1

REPORT INFORMATION
  Report Type: Spontaneous
  Country: FR (occurrence: FR)
  Receive Date: 20200207
  Receipt Date: 20200207
  Transmission Date: 20200409
  Serious: Yes (Other)
  Sender: FDA-Public Use
  Company Number: FR-ROCHE-2538260

PATIENT
  Age: 49 Year
  Sex: Female
  Weight: 49.5 kg

DRUGS (4)
  1. XYLOCAINE [Suspect]
     Active Substance: LIDOCAINE HYDROCHLORIDE
     Indication: INTERVERTEBRAL DISC DISORDER
     Route: 023
     Dates: start: 20180328, end: 20180328
  2. MAGNESIUM [Suspect]
     Active Substance: MAGNESIUM
     Indication: INTERVERTEBRAL DISC DISORDER
     Route: 023
     Dates: start: 20180328, end: 20180328
  3. VALIUM [Suspect]
     Active Substance: DIAZEPAM
     Indication: INTERVERTEBRAL DISC DISORDER
     Route: 023
     Dates: start: 20180328, end: 20180328
  4. KETOPROFENE [KETOPROFEN] [Suspect]
     Active Substance: KETOPROFEN
     Indication: INTERVERTEBRAL DISC DISORDER
     Route: 023
     Dates: start: 20180328, end: 20180328

REACTIONS (7)
  - Depressed level of consciousness [Recovered/Resolved]
  - Night sweats [Recovered/Resolved]
  - Urine odour abnormal [Recovered/Resolved]
  - Asthenia [Recovered/Resolved]
  - Vertigo [Recovered/Resolved]
  - Nausea [Recovered/Resolved]
  - Injection site haematoma [Recovered/Resolved]

NARRATIVE: CASE EVENT DATE: 20180328
